FAERS Safety Report 25898718 (Version 1)
Quarter: 2025Q4

REPORT INFORMATION
  Report Type: Spontaneous
  Country: US (occurrence: US)
  Receive Date: 20251009
  Receipt Date: 20251009
  Transmission Date: 20260117
  Serious: No
  Sender: PL DEVELOPMENTS
  Company Number: US-P+L Devolo-2186221

PATIENT
  Sex: Female

DRUGS (1)
  1. NICOTINE POLACRILEX [Suspect]
     Active Substance: NICOTINE
     Indication: Smoking cessation therapy
     Dates: start: 202509

REACTIONS (7)
  - Product taste abnormal [Unknown]
  - Headache [Recovered/Resolved]
  - Hiccups [Recovered/Resolved]
  - Palpitations [Recovered/Resolved]
  - Dyspepsia [Recovered/Resolved]
  - Product quality issue [Unknown]
  - Burning sensation [Recovered/Resolved]

NARRATIVE: CASE EVENT DATE: 20250901
